FAERS Safety Report 6735108-9 (Version None)
Quarter: 2010Q2

REPORT INFORMATION
  Report Type: 
  Country: None (occurrence: None)
  Receive Date: 20100521
  Receipt Date: 20100512
  Transmission Date: 20101027
  Serious: Yes (Death, Hospitalization, Other)
  Sender: FDA-Public Use
  Company Number: JP-JNJFOC-20100102051

PATIENT
  Sex: Female
  Weight: 49 kg

DRUGS (5)
  1. DOXORUBICIN HCL [Suspect]
     Indication: OVARIAN CANCER RECURRENT
     Dosage: CYCLE 2
     Route: 042
  2. DOXORUBICIN HCL [Suspect]
     Dosage: CYCLE 1
     Route: 042
  3. KYTRIL [Concomitant]
     Indication: PROPHYLAXIS
     Route: 042
  4. DEXART [Concomitant]
     Indication: PROPHYLAXIS
     Route: 042
  5. OXYCONTIN [Concomitant]
     Indication: CANCER PAIN
     Route: 048

REACTIONS (5)
  - DECREASED APPETITE [None]
  - DISEASE PROGRESSION [None]
  - GENERALISED OEDEMA [None]
  - NEUTROPENIA [None]
  - RENAL IMPAIRMENT [None]
